FAERS Safety Report 21298356 (Version 1)
Quarter: 2022Q3

REPORT INFORMATION
  Report Type: Spontaneous
  Country: SE (occurrence: SE)
  Receive Date: 20220906
  Receipt Date: 20220906
  Transmission Date: 20221026
  Serious: Yes (Death, Hospitalization)
  Sender: FDA-Public Use
  Company Number: SE-MYLANLABS-2022M1091567

PATIENT
  Age: 14 Year
  Sex: Male

DRUGS (21)
  1. CLOZAPINE [Suspect]
     Active Substance: CLOZAPINE
     Indication: Panic attack
     Dosage: 12.5 MILLIGRAM, BID
     Route: 065
  2. CLOZAPINE [Suspect]
     Active Substance: CLOZAPINE
     Indication: Hallucination
  3. CLOZAPINE [Suspect]
     Active Substance: CLOZAPINE
     Indication: Neurodegenerative disorder
  4. CLOZAPINE [Suspect]
     Active Substance: CLOZAPINE
     Indication: Hereditary disorder
  5. RISPERIDONE [Suspect]
     Active Substance: RISPERIDONE
     Indication: Panic attack
     Dosage: 0.25 MILLIGRAM, QD
     Route: 065
  6. RISPERIDONE [Suspect]
     Active Substance: RISPERIDONE
     Indication: Hallucination
  7. RISPERIDONE [Suspect]
     Active Substance: RISPERIDONE
     Indication: Neurodegenerative disorder
  8. RISPERIDONE [Suspect]
     Active Substance: RISPERIDONE
     Indication: Hereditary disorder
  9. BRIVARACETAM [Concomitant]
     Active Substance: BRIVARACETAM
     Indication: Agitation
     Dosage: UNK
     Route: 065
  10. BRIVARACETAM [Concomitant]
     Active Substance: BRIVARACETAM
     Indication: Neurodegenerative disorder
  11. BRIVARACETAM [Concomitant]
     Active Substance: BRIVARACETAM
     Indication: Hereditary disorder
  12. MELATONIN [Concomitant]
     Active Substance: MELATONIN
     Indication: Neurodegenerative disorder
     Dosage: UNK (INITIATED AT THE AGE OF 10 YEARS)
     Route: 065
  13. MELATONIN [Concomitant]
     Active Substance: MELATONIN
     Indication: Hereditary disorder
  14. LAMOTRIGINE [Concomitant]
     Active Substance: LAMOTRIGINE
     Indication: Epilepsy
     Dosage: UNK (INITIATED AT THE AGE OF 8.5 YEARS)
     Route: 065
  15. LAMOTRIGINE [Concomitant]
     Active Substance: LAMOTRIGINE
     Indication: Hereditary disorder
  16. LAMOTRIGINE [Concomitant]
     Active Substance: LAMOTRIGINE
     Indication: Neurodegenerative disorder
  17. LEVETIRACETAM [Concomitant]
     Active Substance: LEVETIRACETAM
     Indication: Epilepsy
     Dosage: UNK (INITIATED AT THE AGE OF 11 YEARS)
     Route: 065
  18. LEVETIRACETAM [Concomitant]
     Active Substance: LEVETIRACETAM
     Indication: Neurodegenerative disorder
  19. LEVETIRACETAM [Concomitant]
     Active Substance: LEVETIRACETAM
     Indication: Hereditary disorder
  20. PREGABALIN [Concomitant]
     Active Substance: PREGABALIN
     Indication: Neurodegenerative disorder
     Dosage: UNK (INITIATED AT THE AGE OF 13 YEARS)
     Route: 065
  21. PREGABALIN [Concomitant]
     Active Substance: PREGABALIN
     Indication: Hereditary disorder

REACTIONS (4)
  - Hyperthermia [Fatal]
  - Rhabdomyolysis [Fatal]
  - Neuromyopathy [Fatal]
  - Off label use [Unknown]
